FAERS Safety Report 5405023-1 (Version None)
Quarter: 2007Q3

REPORT INFORMATION
  Report Type: 
  Country: None (occurrence: None)
  Receive Date: 20070803
  Receipt Date: 20070724
  Transmission Date: 20080115
  Serious: Yes (Hospitalization)
  Sender: FDA-Public Use
  Company Number: US-AVENTIS-200716139GDDC

PATIENT
  Age: 50 Year
  Sex: Female
  Weight: 48.22 kg

DRUGS (2)
  1. DOCETAXEL [Suspect]
     Route: 042
     Dates: start: 20070627, end: 20070627
  2. CODE UNBROKEN [Suspect]
     Route: 048
     Dates: start: 20070103, end: 20070628

REACTIONS (3)
  - DIARRHOEA [None]
  - FEBRILE NEUTROPENIA [None]
  - PNEUMATOSIS INTESTINALIS [None]
